FAERS Safety Report 15130498 (Version 3)
Quarter: 2018Q3

REPORT INFORMATION
  Report Type: Spontaneous
  Country: IT (occurrence: IT)
  Receive Date: 20180711
  Receipt Date: 20180806
  Transmission Date: 20181010
  Serious: Yes (Other)
  Sender: FDA-Public Use
  Company Number: IT-BAYER-2018-125869

PATIENT
  Age: 59 Year
  Sex: Female

DRUGS (4)
  1. REGORAFENIB. [Suspect]
     Active Substance: REGORAFENIB
     Indication: ADENOCARCINOMA OF COLON
     Dosage: 160 MG, DAILY
     Route: 048
     Dates: start: 20180307, end: 20180630
  2. CAPECITABINE. [Concomitant]
     Active Substance: CAPECITABINE
     Indication: COLON CANCER STAGE IV
     Dosage: UNK
     Dates: start: 20160711
  3. OXALIPLATIN. [Concomitant]
     Active Substance: OXALIPLATIN
     Indication: COLON CANCER STAGE IV
     Dosage: UNK
     Dates: start: 20160711
  4. BEVACIZUMAB. [Concomitant]
     Active Substance: BEVACIZUMAB
     Indication: COLON CANCER STAGE IV
     Dosage: UNK
     Dates: start: 20160711

REACTIONS (9)
  - Carcinoembryonic antigen increased [None]
  - Asthenia [Recovered/Resolved]
  - Hypotension [None]
  - Therapeutic product ineffective [None]
  - Decreased appetite [None]
  - Hepatotoxicity [None]
  - Decreased appetite [None]
  - Metastases to lung [None]
  - Hypothyroidism [None]

NARRATIVE: CASE EVENT DATE: 20180328
